FAERS Safety Report 12806916 (Version 1)
Quarter: 2016Q4

REPORT INFORMATION
  Report Type: Spontaneous
  Country: None (occurrence: US)
  Receive Date: 20161004
  Receipt Date: 20161004
  Transmission Date: 20170207
  Serious: No
  Sender: FDA-Public Use
  Company Number: US-MERZ NORTH AMERICA, INC.-16MRZ-00599

PATIENT
  Age: 37 Week
  Sex: Female

DRUGS (1)
  1. XEOMIN [Suspect]
     Active Substance: INCOBOTULINUMTOXINA
     Indication: PRODUCT USED FOR UNKNOWN INDICATION
     Dosage: 20 UNITS GLABELLA?10 UNITS FOREHEAD?2 UNITS NOSE ?2 UNITS MOUTH?16 UNITS TEMPLES
     Dates: start: 20160913

REACTIONS (1)
  - Drug ineffective [Not Recovered/Not Resolved]
